FAERS Safety Report 20114603 (Version 2)
Quarter: 2024Q4

REPORT INFORMATION
  Report Type: Spontaneous
  Country: US (occurrence: US)
  Receive Date: 20211125
  Receipt Date: 20241016
  Transmission Date: 20250115
  Serious: No
  Sender: SANOFI AVENTIS
  Company Number: US-SA-SAC20211118000868

PATIENT
  Sex: Female
  Weight: 69.09 kg

DRUGS (5)
  1. DUPIXENT [Suspect]
     Active Substance: DUPILUMAB
     Indication: Dermatitis allergic
     Dosage: 300 MG, QOW
     Route: 058
  2. DUPIXENT [Suspect]
     Active Substance: DUPILUMAB
     Indication: Dermatitis atopic
  3. DUPIXENT [Suspect]
     Active Substance: DUPILUMAB
     Indication: Psoriasis
  4. DUPIXENT [Suspect]
     Active Substance: DUPILUMAB
     Indication: Breast cancer female
  5. VERZENIO [Concomitant]
     Active Substance: ABEMACICLIB

REACTIONS (1)
  - Product use in unapproved indication [Unknown]
